FAERS Safety Report 7996842-6 (Version None)
Quarter: 2011Q4

REPORT INFORMATION
  Report Type: 
  Country: None (occurrence: None)
  Receive Date: 20111221
  Receipt Date: 20111216
  Transmission Date: 20120403
  Serious: Yes (Death)
  Sender: FDA-Public Use
  Company Number: BE-JNJFOC-20111203531

PATIENT
  Sex: Female

DRUGS (12)
  1. TRABECTEDIN [Suspect]
     Route: 042
  2. DOXORUBICIN HCL [Suspect]
     Indication: OVARIAN NEOPLASM
     Route: 042
  3. TRABECTEDIN [Suspect]
     Route: 042
  4. DOXORUBICIN HCL [Suspect]
     Route: 042
  5. DOXORUBICIN HCL [Suspect]
     Route: 042
  6. TRABECTEDIN [Suspect]
     Indication: OVARIAN NEOPLASM
     Route: 042
     Dates: start: 20110811
  7. DOXORUBICIN HCL [Suspect]
     Route: 042
  8. TRABECTEDIN [Suspect]
     Route: 042
  9. DOXORUBICIN HCL [Suspect]
     Route: 042
     Dates: start: 20110811
  10. TRABECTEDIN [Suspect]
     Route: 042
  11. TRABECTEDIN [Suspect]
     Route: 042
  12. DOXORUBICIN HCL [Suspect]
     Route: 042

REACTIONS (1)
  - SEPSIS [None]
